FAERS Safety Report 17921949 (Version 1)
Quarter: 2020Q2

REPORT INFORMATION
  Report Type: Spontaneous
  Country: US (occurrence: US)
  Receive Date: 20200619
  Receipt Date: 20200619
  Transmission Date: 20200714
  Serious: Yes (Death)
  Sender: FDA-Public Use
  Company Number: None

PATIENT
  Age: 53 Year
  Sex: Female
  Weight: 78.3 kg

DRUGS (3)
  1. OMNIPAQUE 350 MG [Concomitant]
     Dates: start: 20200522, end: 20200522
  2. VANCOMYCON [Concomitant]
     Dates: start: 20200522, end: 20200525
  3. REMDESIVIR. [Suspect]
     Active Substance: REMDESIVIR
     Indication: COVID-19
     Route: 042
     Dates: start: 20200524, end: 20200527

REACTIONS (2)
  - Thrombocytopenia [None]
  - Acute kidney injury [None]

NARRATIVE: CASE EVENT DATE: 20200527
